FAERS Safety Report 9902900 (Version 1)
Quarter: 2014Q1

REPORT INFORMATION
  Report Type: Spontaneous
  Country: JP (occurrence: JP)
  Receive Date: 20140217
  Receipt Date: 20140217
  Transmission Date: 20141002
  Serious: Yes (Death, Other)
  Sender: FDA-Public Use
  Company Number: PHHY2014JP016880

PATIENT
  Age: 11 Year
  Sex: Male

DRUGS (6)
  1. SANDIMMUN [Suspect]
     Indication: HISTIOCYTOSIS HAEMATOPHAGIC
     Route: 065
  2. SANDIMMUN [Suspect]
     Indication: OFF LABEL USE
  3. NEORAL [Suspect]
     Indication: HISTIOCYTOSIS HAEMATOPHAGIC
  4. DEXAMETHASONE [Suspect]
     Indication: IMMUNOSUPPRESSION
     Dosage: UNK UKN, UNK
  5. ETOPOSIDE [Suspect]
     Indication: IMMUNOSUPPRESSION
  6. TACROLIMUS [Suspect]
     Indication: PROPHYLAXIS AGAINST GRAFT VERSUS HOST DISEASE

REACTIONS (7)
  - Bone marrow failure [Fatal]
  - Histiocytosis haematophagic [Fatal]
  - Renal impairment [Unknown]
  - Complications of bone marrow transplant [Unknown]
  - Adenovirus infection [Unknown]
  - Haematuria [Unknown]
  - Melaena [Unknown]
